FAERS Safety Report 9853716 (Version 1)
Quarter: 2014Q1

REPORT INFORMATION
  Report Type: Spontaneous
  Country: RS (occurrence: RS)
  Receive Date: 20140129
  Receipt Date: 20140129
  Transmission Date: 20141002
  Serious: Yes (Other)
  Sender: FDA-Public Use
  Company Number: RS-ACTAVIS-2014-00828

PATIENT
  Age: 74 Year
  Sex: Female
  Weight: 64 kg

DRUGS (4)
  1. CIPROCINAL [Suspect]
     Indication: CYSTITIS
     Dosage: 1000 MG, DAILY
     Route: 048
     Dates: start: 20131211, end: 20131215
  2. CARVEDILOL [Concomitant]
     Indication: ESSENTIAL HYPERTENSION
     Dosage: 375 MG, DAILY
     Route: 065
  3. ISOSORBIDE MONONITRATE [Concomitant]
     Indication: ESSENTIAL HYPERTENSION
     Dosage: 40 MG, DAILY
     Route: 065
  4. HYDROCHLOROTHIAZIDE W/LOSARTAN [Concomitant]
     Indication: ESSENTIAL HYPERTENSION
     Dosage: 6.25 MG/25 MG, DAILY
     Route: 065

REACTIONS (6)
  - Hypotension [Recovering/Resolving]
  - Hepatosplenomegaly [Recovering/Resolving]
  - Jaundice [Recovering/Resolving]
  - Vomiting [Recovering/Resolving]
  - Malaise [Recovering/Resolving]
  - Blood urea increased [Recovering/Resolving]
